FAERS Safety Report 25825558 (Version 1)
Quarter: 2025Q3

REPORT INFORMATION
  Report Type: Spontaneous
  Country: GB (occurrence: GB)
  Receive Date: 20250919
  Receipt Date: 20250919
  Transmission Date: 20251020
  Serious: Yes (Hospitalization, Other)
  Sender: ELI LILLY AND COMPANY
  Company Number: None

PATIENT
  Age: 29 Year
  Sex: Female
  Weight: 106 kg

DRUGS (2)
  1. MOUNJARO [Suspect]
     Active Substance: TIRZEPATIDE
     Indication: Weight control
     Route: 065
  2. SERTRALINE [Concomitant]
     Active Substance: SERTRALINE HYDROCHLORIDE
     Indication: Product used for unknown indication

REACTIONS (1)
  - Obstructive pancreatitis [Recovering/Resolving]

NARRATIVE: CASE EVENT DATE: 20250909
